FAERS Safety Report 7400050-7 (Version None)
Quarter: 2011Q1

REPORT INFORMATION
  Report Type: 
  Country: None (occurrence: None)
  Receive Date: 20110329
  Receipt Date: 20110316
  Transmission Date: 20110831
  Serious: Yes (Death, Other)
  Sender: FDA-Public Use
  Company Number: 011314

PATIENT
  Age: 62 Year
  Sex: Male

DRUGS (3)
  1. FLUDARABINE PHOSPHATE [Concomitant]
  2. BUSULFEX [Suspect]
     Indication: BONE MARROW TRANSPLANT
     Dosage: INTRAVENEOUS
     Route: 042
  3. BUSULFEX [Suspect]
     Indication: STEM CELL TRANSPLANT
     Dosage: INTRAVENEOUS
     Route: 042

REACTIONS (4)
  - PULMONARY HAEMORRHAGE [None]
  - ACUTE MYELOID LEUKAEMIA [None]
  - DISEASE PROGRESSION [None]
  - ACUTE GRAFT VERSUS HOST DISEASE IN SKIN [None]
